FAERS Safety Report 6726992-3 (Version None)
Quarter: 2010Q2

REPORT INFORMATION
  Report Type: 
  Country: None (occurrence: None)
  Receive Date: 20100517
  Receipt Date: 20100513
  Transmission Date: 20101027
  Serious: No
  Sender: FDA-Public Use
  Company Number: US-BIOGENIDEC-2010BI015886

PATIENT
  Age: 49 Year
  Sex: Male

DRUGS (1)
  1. AVONEX [Suspect]
     Indication: MULTIPLE SCLEROSIS
     Route: 030
     Dates: start: 20100424

REACTIONS (5)
  - INFLUENZA LIKE ILLNESS [None]
  - LIP SWELLING [None]
  - ORAL HERPES [None]
  - PHOTOSENSITIVITY REACTION [None]
  - TONGUE ULCERATION [None]
